FAERS Safety Report 8916902 (Version 1)
Quarter: 2012Q4

REPORT INFORMATION
  Report Type: 
  Country: TW (occurrence: TW)
  Receive Date: 20121120
  Receipt Date: 20121120
  Transmission Date: 20130627
  Serious: Yes (Other)
  Sender: FDA-Public Use
  Company Number: TW-ROCHE-1157028

PATIENT
  Sex: Female

DRUGS (11)
  1. HERCEPTIN [Suspect]
     Indication: BREAST CANCER METASTATIC
     Route: 065
     Dates: start: 200911, end: 201010
  2. HERCEPTIN [Suspect]
     Route: 065
     Dates: start: 201011, end: 201101
  3. HERCEPTIN [Suspect]
     Route: 065
     Dates: start: 201102, end: 201104
  4. HERCEPTIN [Suspect]
     Route: 065
     Dates: start: 201105, end: 201107
  5. EPIRUBICIN [Suspect]
     Indication: BREAST CANCER METASTATIC
     Route: 065
     Dates: start: 200911, end: 201010
  6. TAXOTERE [Suspect]
     Indication: BREAST CANCER METASTATIC
     Route: 065
     Dates: start: 200911, end: 201010
  7. TAXOTERE [Suspect]
     Route: 065
     Dates: start: 201102, end: 201104
  8. TAXOL [Suspect]
     Indication: BREAST CANCER METASTATIC
     Route: 065
     Dates: start: 201011, end: 201101
  9. LEUPLIN [Suspect]
     Indication: BREAST CANCER METASTATIC
     Route: 065
     Dates: start: 201105, end: 201107
  10. AROMASIN [Suspect]
     Indication: BREAST CANCER METASTATIC
     Route: 065
     Dates: start: 201105, end: 201107
  11. LIPODOX [Suspect]
     Indication: BREAST CANCER METASTATIC
     Route: 065
     Dates: start: 201111, end: 201201

REACTIONS (8)
  - Bone marrow failure [Unknown]
  - Neuropathy peripheral [Unknown]
  - Mucosal inflammation [Unknown]
  - Alopecia [Unknown]
  - Mood swings [Unknown]
  - Hypersensitivity [Unknown]
  - Tinnitus [Unknown]
  - Discomfort [Unknown]
